FAERS Safety Report 8382973-8 (Version None)
Quarter: 2012Q2

REPORT INFORMATION
  Report Type: 
  Country: None (occurrence: None)
  Receive Date: 20120522
  Receipt Date: 20120509
  Transmission Date: 20120825
  Serious: Yes (Hospitalization, Other)
  Sender: FDA-Public Use
  Company Number: AUR-APL-2010-00356

PATIENT
  Age: 18 Year
  Sex: Male

DRUGS (7)
  1. OLANZAPINE [Concomitant]
  2. SENNA-MINT WAF [Concomitant]
  3. METFORMIN HCL [Suspect]
     Indication: WEIGHT DECREASED
     Dosage: 250 MG (250 MG, 1 IN 1 D), 500 MG (250 MG, 2 IN 1 D)
     Dates: end: 20080405
  4. METFORMIN HCL [Suspect]
     Indication: WEIGHT DECREASED
     Dosage: 250 MG (250 MG, 1 IN 1 D), 500 MG (250 MG, 2 IN 1 D)
     Dates: start: 20080401, end: 20080405
  5. HYOSCINE HBR HYT [Concomitant]
  6. CLOZARIL [Suspect]
     Indication: SCHIZOPHRENIA
     Dosage: (350 MG), ORAL, (2 IN 1 D), ORAL
     Route: 048
     Dates: start: 20071102, end: 20080514
  7. DOCUSATE (DOCUSATE) [Concomitant]

REACTIONS (11)
  - DRUG INTERACTION [None]
  - GASTROENTERITIS [None]
  - NAUSEA [None]
  - PNEUMONIA VIRAL [None]
  - VOMITING [None]
  - ENURESIS [None]
  - NEUTROPENIA [None]
  - DIARRHOEA [None]
  - SALIVARY HYPERSECRETION [None]
  - DEHYDRATION [None]
  - WEIGHT INCREASED [None]
